FAERS Safety Report 7437176-8 (Version None)
Quarter: 2011Q2

REPORT INFORMATION
  Report Type: 
  Country: None (occurrence: None)
  Receive Date: 20110426
  Receipt Date: 20110413
  Transmission Date: 20111010
  Serious: Yes (Hospitalization, Other)
  Sender: FDA-Public Use
  Company Number: DE-PFIZER INC-2006101763

PATIENT
  Sex: Female
  Weight: 34.02 kg

DRUGS (3)
  1. RIFAMPICIN [Concomitant]
     Indication: DEVICE RELATED INFECTION
     Dosage: 600 MG, 1X/DAY
     Route: 042
     Dates: start: 20050721, end: 20050819
  2. LINEZOLID [Suspect]
     Indication: DEVICE RELATED INFECTION
     Dosage: 1200 MG, 1X/DAY
     Route: 042
     Dates: start: 20050721, end: 20050731
  3. PHENYTOIN [Concomitant]
     Indication: PARTIAL SEIZURES
     Dosage: 500 MG, 1X/DAY
     Route: 048
     Dates: start: 20050725

REACTIONS (3)
  - POSTERIOR REVERSIBLE ENCEPHALOPATHY SYNDROME [None]
  - PARTIAL SEIZURES [None]
  - VISUAL IMPAIRMENT [None]
